FAERS Safety Report 7707063 (Version 7)
Quarter: 2013Q3

REPORT INFORMATION
  Report Type: Spontaneous
  Country: US (occurrence: US)
  Receive Date: 20101214
  Receipt Date: 20130812
  Transmission Date: 20140515
  Serious: Yes (Other)
  Sender: FDA-Public Use
  Company Number: US-ROCHE-718937

PATIENT
  Age: 19 Year
  Sex: Female
  Weight: 55.3 kg

DRUGS (6)
  1. ACCUTANE [Suspect]
     Indication: ACNE
     Route: 048
     Dates: start: 20050707, end: 20050901
  2. ACCUTANE [Suspect]
     Route: 048
     Dates: start: 20050901, end: 20051006
  3. ACCUTANE [Suspect]
     Dosage: 50 MG ALTERNATING WITH 60 MG DAILY
     Route: 048
     Dates: start: 20051006, end: 20051103
  4. ACCUTANE [Suspect]
     Route: 048
     Dates: start: 20051103, end: 20051207
  5. ACCUTANE [Suspect]
     Dosage: 55 MG ALTERNATING WITH 60 MG DAILY
     Route: 048
     Dates: start: 20051207, end: 20051217
  6. TYLENOL [Concomitant]

REACTIONS (18)
  - Crohn^s disease [Unknown]
  - Ileal fistula [Unknown]
  - Gastrointestinal injury [Unknown]
  - Abscess intestinal [Unknown]
  - Inflammatory bowel disease [Unknown]
  - Anal fissure [Unknown]
  - Anal stenosis [Unknown]
  - Anal abscess [Unknown]
  - Anal fistula [Unknown]
  - Malnutrition [Unknown]
  - Weight decreased [Unknown]
  - Bone density decreased [Unknown]
  - Irritable bowel syndrome [Unknown]
  - Depression [Unknown]
  - Blood triglycerides increased [Unknown]
  - Fracture [Unknown]
  - Osteoporosis [Unknown]
  - Dry skin [Unknown]
